FAERS Safety Report 7124630-1 (Version None)
Quarter: 2010Q4

REPORT INFORMATION
  Report Type: 
  Country: None (occurrence: None)
  Receive Date: 20101122
  Receipt Date: 20101122
  Transmission Date: 20110411
  Serious: Yes (Other)
  Sender: FDA-Public Use
  Company Number: None

PATIENT
  Age: 3 Year
  Sex: Male
  Weight: 11.3399 kg

DRUGS (1)
  1. LANSOPRAZOLE [Suspect]
     Dosage: 15MG TABLET 2 TIMES A DAY PO
     Route: 048
     Dates: start: 20101110, end: 20101116

REACTIONS (1)
  - URTICARIA [None]
